FAERS Safety Report 16014160 (Version 3)
Quarter: 2019Q3

REPORT INFORMATION
  Report Type: Spontaneous
  Country: US (occurrence: US)
  Receive Date: 20190227
  Receipt Date: 20190813
  Transmission Date: 20191004
  Serious: No
  Sender: FDA-Public Use
  Company Number: US-PFIZER INC-2019082087

PATIENT
  Age: 14 Year
  Sex: Female
  Weight: 65.76 kg

DRUGS (2)
  1. GENOTROPIN [Suspect]
     Active Substance: SOMATROPIN
     Indication: TURNER^S SYNDROME
     Dosage: 3.8 MG, UNK (3.8 MG, 6 DAYS A WEEK, INJECTION EITHER IN LEG OR TUMMY)
  2. GENOTROPIN [Suspect]
     Active Substance: SOMATROPIN
     Indication: BLOOD GROWTH HORMONE
     Dosage: 3.8 MG, UNK (6 DAYS A WEEK)

REACTIONS (11)
  - Blood albumin increased [Unknown]
  - Mean platelet volume decreased [Unknown]
  - Product dose omission [Not Recovered/Not Resolved]
  - Incorrect dose administered by device [Not Recovered/Not Resolved]
  - Platelet count increased [Unknown]
  - Blood calcium increased [Unknown]
  - Insulin-like growth factor increased [Unknown]
  - Blood alkaline phosphatase increased [Unknown]
  - Device issue [Not Recovered/Not Resolved]
  - Blood creatinine decreased [Unknown]
  - Mean cell haemoglobin concentration [Unknown]

NARRATIVE: CASE EVENT DATE: 20190614
